FAERS Safety Report 4932244-4 (Version None)
Quarter: 2006Q1

REPORT INFORMATION
  Report Type: 
  Country: None (occurrence: None)
  Receive Date: 20060303
  Receipt Date: 20051220
  Transmission Date: 20060701
  Serious: Yes (Hospitalization)
  Sender: FDA-Public Use
  Company Number: FR-ABBOTT-05P-056-0320307-00

PATIENT
  Age: 59 Year
  Sex: Male

DRUGS (4)
  1. DEPAKENE [Suspect]
     Indication: EPILEPSY
     Route: 048
     Dates: start: 20021019
  2. DEPAKENE [Suspect]
     Dates: end: 20040423
  3. CARBAMAZEPINE [Concomitant]
     Indication: EPILEPSY
     Route: 048
     Dates: start: 19960101
  4. CLOBAZAM [Concomitant]
     Indication: DRUG USE FOR UNKNOWN INDICATION

REACTIONS (4)
  - BILE DUCT STONE [None]
  - HEPATITIS TOXIC [None]
  - JAUNDICE [None]
  - PYREXIA [None]
